FAERS Safety Report 13818049 (Version 1)
Quarter: 2017Q3

REPORT INFORMATION
  Report Type: Spontaneous
  Country: US (occurrence: US)
  Receive Date: 20170731
  Receipt Date: 20170731
  Transmission Date: 20171127
  Serious: Yes (Other)
  Sender: FDA-Public Use
  Company Number: US-ROCHE-600316

PATIENT
  Age: 65 Year
  Sex: Female
  Weight: 64.4 kg

DRUGS (6)
  1. ASA [Concomitant]
     Active Substance: ASPIRIN
     Indication: ISCHAEMIC HEART DISEASE PROPHYLAXIS
     Dosage: FREQUENCY REPORTED AS: QD
     Route: 048
  2. CRESTOR [Concomitant]
     Active Substance: ROSUVASTATIN CALCIUM
     Indication: BLOOD CHOLESTEROL
     Dosage: DOSE REPORTED AS: 0.5 QHS
     Route: 048
  3. PREDNISONE. [Concomitant]
     Active Substance: PREDNISONE
     Indication: MYALGIA
     Dosage: DOSE REPORTED AS: 1 QD
     Route: 048
  4. ADVAIR HFA [Concomitant]
     Active Substance: FLUTICASONE PROPIONATE\SALMETEROL XINAFOATE
     Indication: ASTHMA
     Dosage: STRENGTH REPORTED AS: 250/ 56, DOSE REPORTED AS: 1 BID
     Route: 055
  5. BONIVA [Suspect]
     Active Substance: IBANDRONATE SODIUM
     Indication: OSTEOPOROSIS
     Dosage: STRENGTH REPORTED AS: 3 MG/ 3 ML
     Route: 042
     Dates: start: 20080711, end: 20081113
  6. ALPRAZOLAM. [Concomitant]
     Active Substance: ALPRAZOLAM
     Indication: ANXIETY
     Dosage: DOSE: 0.5 BID
     Route: 048

REACTIONS (5)
  - Injection site swelling [Recovering/Resolving]
  - Procedural complication [Unknown]
  - Vascular rupture [Unknown]
  - Injection site pain [Recovering/Resolving]
  - Injection site induration [Recovering/Resolving]

NARRATIVE: CASE EVENT DATE: 20081114
